FAERS Safety Report 12710641 (Version 2)
Quarter: 2022Q4

REPORT INFORMATION
  Report Type: Report from Study
  Country: US (occurrence: US)
  Receive Date: 20160902
  Receipt Date: 20221215
  Transmission Date: 20230112
  Serious: Yes (Hospitalization, Other)
  Sender: FDA-Public Use
  Company Number: US-SHIRE-US201610636

PATIENT
  Sex: Female
  Weight: 91 kg

DRUGS (14)
  1. PENTASA [Suspect]
     Active Substance: MESALAMINE
     Indication: Product used for unknown indication
     Dosage: 250 MILLIGRAM
     Route: 048
     Dates: start: 2001
  2. PENTASA [Suspect]
     Active Substance: MESALAMINE
     Dosage: 250 MILLIGRAM
     Route: 048
     Dates: end: 201408
  3. PENTASA [Suspect]
     Active Substance: MESALAMINE
     Dosage: 250 MILLIGRAM
     Route: 048
     Dates: start: 201501, end: 201605
  4. PENTASA [Suspect]
     Active Substance: MESALAMINE
     Dosage: 4000 MILLIGRAM, QD
     Route: 048
     Dates: start: 201605, end: 201608
  5. PENTASA [Suspect]
     Active Substance: MESALAMINE
     Dosage: 2500 MILLIGRAM, QD
     Route: 048
     Dates: start: 201608
  6. NEURONTIN [Concomitant]
     Active Substance: GABAPENTIN
     Indication: Neuropathy peripheral
     Dosage: 300 MG, 1X/DAY:QD
     Route: 065
     Dates: start: 2001, end: 201608
  7. KLONOPIN [Concomitant]
     Active Substance: CLONAZEPAM
     Indication: Sleep disorder
     Dosage: 2 MG, OTHER (AT NIGHT)
     Route: 065
     Dates: start: 2001
  8. KLONOPIN [Concomitant]
     Active Substance: CLONAZEPAM
     Indication: Chronic fatigue syndrome
  9. ATIVAN [Concomitant]
     Active Substance: LORAZEPAM
     Indication: Sleep disorder
     Dosage: 1 MG, OTHER (AT NIGHT)
     Route: 065
  10. XANAX [Concomitant]
     Active Substance: ALPRAZOLAM
     Indication: Product used for unknown indication
     Dosage: .025 MG, AS REQ^D
     Route: 065
  11. OMEPRAZOLE [Concomitant]
     Active Substance: OMEPRAZOLE
     Indication: Gastric disorder
     Dosage: 20 MG, OTHER (AT NIGHT)
     Route: 065
     Dates: end: 201606
  12. SYNTHROID [Concomitant]
     Active Substance: LEVOTHYROXINE SODIUM
     Indication: Product used for unknown indication
     Dosage: 118.5 MG, OTHER (IN THE MORNING)
     Route: 065
  13. ASPIRIN [Concomitant]
     Active Substance: ASPIRIN
     Indication: Product used for unknown indication
     Dosage: UNK, 1X/DAY:QD
     Route: 065
  14. IRON                               /00023503/ [Concomitant]
     Indication: Haemorrhagic disorder
     Dosage: UNK, UNKNOWN
     Route: 065
     Dates: end: 2016

REACTIONS (11)
  - Melaena [Recovered/Resolved]
  - Cerebrovascular accident [Unknown]
  - Internal haemorrhage [Recovered/Resolved]
  - Disability [Not Recovered/Not Resolved]
  - Colitis ulcerative [Unknown]
  - Weight decreased [Not Recovered/Not Resolved]
  - Stress [Not Recovered/Not Resolved]
  - Alopecia [Not Recovered/Not Resolved]
  - Decreased appetite [Unknown]
  - Drug ineffective [Recovered/Resolved]
  - Memory impairment [Unknown]

NARRATIVE: CASE EVENT DATE: 20010101
